FAERS Safety Report 9936666 (Version 1)
Quarter: 2014Q1

REPORT INFORMATION
  Report Type: Spontaneous
  Country: US (occurrence: US)
  Receive Date: 20140228
  Receipt Date: 20140228
  Transmission Date: 20141002
  Serious: Yes (Hospitalization)
  Sender: FDA-Public Use
  Company Number: US-SANOFI-AVENTIS-2013SA049055

PATIENT
  Sex: Female

DRUGS (2)
  1. GLYBURIDE [Suspect]
  2. METFORMIN [Concomitant]

REACTIONS (1)
  - Hyperglycaemia [Unknown]
